FAERS Safety Report 24631415 (Version 1)
Quarter: 2024Q4

REPORT INFORMATION
  Report Type: Spontaneous
  Country: RU (occurrence: RU)
  Receive Date: 20241118
  Receipt Date: 20241118
  Transmission Date: 20250114
  Serious: Yes (Hospitalization)
  Sender: VALIDUS
  Company Number: RU-VALIDUS PHARMACEUTICALS LLC-RU-VDP-2024-019467

PATIENT

DRUGS (3)
  1. FUROSEMIDE [Suspect]
     Active Substance: FUROSEMIDE
     Indication: Accidental poisoning
     Dosage: 30 TABLETS
     Route: 048
     Dates: start: 20240423, end: 20240423
  2. DROTAVERINE HYDROCHLORIDE [Suspect]
     Active Substance: DROTAVERINE HYDROCHLORIDE
     Indication: Accidental poisoning
     Dosage: 10 DF, TOTAL
     Route: 048
     Dates: start: 20240423, end: 20240423
  3. FOLIC ACID [Suspect]
     Active Substance: FOLIC ACID
     Indication: Accidental poisoning
     Dosage: 10 DF, TOTAL
     Route: 048
     Dates: start: 20240423, end: 20240423

REACTIONS (4)
  - Pollakiuria [Recovered/Resolved]
  - Accidental overdose [Recovered/Resolved]
  - Lethargy [Recovered/Resolved]
  - Muscle spasms [Recovered/Resolved]

NARRATIVE: CASE EVENT DATE: 20240423
